FAERS Safety Report 19450165 (Version 3)
Quarter: 2021Q4

REPORT INFORMATION
  Report Type: Spontaneous
  Country: US (occurrence: US)
  Receive Date: 20210622
  Receipt Date: 20211208
  Transmission Date: 20220303
  Serious: Yes (Hospitalization, Other)
  Sender: FDA-Public Use
  Company Number: US-GILEAD-2021-0537486

PATIENT
  Sex: Male

DRUGS (32)
  1. VIREAD [Suspect]
     Active Substance: TENOFOVIR DISOPROXIL FUMARATE
     Indication: HIV infection
     Dosage: UNK
     Route: 048
     Dates: start: 2001
  2. VIREAD [Suspect]
     Active Substance: TENOFOVIR DISOPROXIL FUMARATE
     Dosage: UNK
     Route: 048
     Dates: start: 2005, end: 2013
  3. TRUVADA [Suspect]
     Active Substance: EMTRICITABINE\TENOFOVIR DISOPROXIL FUMARATE
     Indication: HIV infection
     Dosage: UNK
     Route: 048
     Dates: start: 2001
  4. TRUVADA [Suspect]
     Active Substance: EMTRICITABINE\TENOFOVIR DISOPROXIL FUMARATE
     Dosage: UNK
     Route: 048
     Dates: start: 2013, end: 2018
  5. ATRIPLA [Suspect]
     Active Substance: EFAVIRENZ\EMTRICITABINE\TENOFOVIR DISOPROXIL FUMARATE
     Indication: HIV infection
     Dosage: UNK
     Route: 048
     Dates: start: 2001
  6. COMPLERA [Suspect]
     Active Substance: EMTRICITABINE\RILPIVIRINE HYDROCHLORIDE\TENOFOVIR DISOPROXIL FUMARATE
     Indication: HIV infection
     Dosage: UNK
     Route: 048
     Dates: start: 2001
  7. BIKTARVY [Concomitant]
     Active Substance: BICTEGRAVIR SODIUM\EMTRICITABINE\TENOFOVIR ALAFENAMIDE FUMARATE
  8. COMBIVIR [Concomitant]
     Active Substance: LAMIVUDINE\ZIDOVUDINE
  9. CRIXIVAN [Concomitant]
     Active Substance: INDINAVIR SULFATE
  10. DESCOVY [Concomitant]
     Active Substance: EMTRICITABINE\TENOFOVIR ALAFENAMIDE FUMARATE
  11. EPIVIR [Concomitant]
     Active Substance: LAMIVUDINE
  12. ISENTRESS [Concomitant]
     Active Substance: RALTEGRAVIR POTASSIUM
  13. JULUCA [Concomitant]
     Active Substance: DOLUTEGRAVIR SODIUM\RILPIVIRINE HYDROCHLORIDE
  14. KALETRA [Concomitant]
     Active Substance: LOPINAVIR\RITONAVIR
  15. NORVIR [Concomitant]
     Active Substance: RITONAVIR
  16. REYATAZ [Concomitant]
     Active Substance: ATAZANAVIR SULFATE
  17. TIVICAY [Concomitant]
     Active Substance: DOLUTEGRAVIR SODIUM
  18. VIRACEPT [Concomitant]
     Active Substance: NELFINAVIR MESYLATE
  19. VIRAMUNE [Concomitant]
     Active Substance: NEVIRAPINE
  20. AMLODIPINE [Concomitant]
     Active Substance: AMLODIPINE BESYLATE
  21. GABAPENTIN [Concomitant]
     Active Substance: GABAPENTIN
  22. AZITHROMYCIN [Concomitant]
     Active Substance: AZITHROMYCIN
  23. KEPPRA [Concomitant]
     Active Substance: LEVETIRACETAM
  24. DEPAKOTE [Concomitant]
     Active Substance: DIVALPROEX SODIUM
  25. HYDROCHLOROTHIAZIDE [Concomitant]
     Active Substance: HYDROCHLOROTHIAZIDE
  26. DARUNAVIR ETHANOLATE [Concomitant]
     Active Substance: DARUNAVIR ETHANOLATE
  27. VIDEX [Concomitant]
     Active Substance: DIDANOSINE
  28. METHOCARBAMOL [Concomitant]
     Active Substance: METHOCARBAMOL
  29. FAMCICLOVIR [Concomitant]
     Active Substance: FAMCICLOVIR
  30. ZERIT [Concomitant]
     Active Substance: STAVUDINE
  31. TIPRANAVIR [Concomitant]
     Active Substance: TIPRANAVIR
  32. NAPROXEN [Concomitant]
     Active Substance: NAPROXEN

REACTIONS (10)
  - Osteoporosis [Not Recovered/Not Resolved]
  - Radius fracture [Not Recovered/Not Resolved]
  - Bone density decreased [Unknown]
  - Upper limb fracture [Unknown]
  - Pain [Not Recovered/Not Resolved]
  - Emotional distress [Not Recovered/Not Resolved]
  - Anxiety [Not Recovered/Not Resolved]
  - Anhedonia [Not Recovered/Not Resolved]
  - Tooth loss [Not Recovered/Not Resolved]
  - Loss of personal independence in daily activities [Unknown]

NARRATIVE: CASE EVENT DATE: 20060101
